FAERS Safety Report 13163358 (Version 1)
Quarter: 2017Q1

REPORT INFORMATION
  Report Type: Spontaneous
  Country: US (occurrence: US)
  Receive Date: 20170129
  Receipt Date: 20170129
  Transmission Date: 20170428
  Serious: Yes (Other)
  Sender: FDA-Public Use
  Company Number: None

PATIENT
  Age: 45 Year
  Sex: Female
  Weight: 59.85 kg

DRUGS (7)
  1. SIMVASTATIN. [Concomitant]
     Active Substance: SIMVASTATIN
  2. VITAMIN C [Concomitant]
     Active Substance: ASCORBIC ACID
  3. MILK THISTLE [Concomitant]
     Active Substance: MILK THISTLE
  4. RAW ZINC [Concomitant]
  5. TERBINAFINE. [Suspect]
     Active Substance: TERBINAFINE
     Indication: PARONYCHIA
     Dosage: ?          QUANTITY:1 TABLET(S);?
     Route: 048
     Dates: start: 20161121, end: 20161226
  6. MULTI VITAMINS [Concomitant]
     Active Substance: VITAMINS
  7. CALCIUM [Concomitant]
     Active Substance: CALCIUM

REACTIONS (4)
  - Ageusia [None]
  - Depression [None]
  - Feeling of despair [None]
  - Weight decreased [None]

NARRATIVE: CASE EVENT DATE: 20161221
